FAERS Safety Report 20590442 (Version 1)
Quarter: 2022Q1

REPORT INFORMATION
  Report Type: Spontaneous
  Country: US (occurrence: US)
  Receive Date: 20220314
  Receipt Date: 20220314
  Transmission Date: 20220423
  Serious: Yes (Death, Hospitalization, Other)
  Sender: FDA-Public Use
  Company Number: US-009507513-2203USA004053

PATIENT

DRUGS (2)
  1. KEYTRUDA [Suspect]
     Active Substance: PEMBROLIZUMAB
     Dosage: UNK
  2. LENVATINIB MESYLATE [Suspect]
     Active Substance: LENVATINIB MESYLATE
     Dosage: 20 MILLIGRAM, DAILY
     Route: 048
     Dates: start: 20211214

REACTIONS (9)
  - Death [Fatal]
  - Severe cutaneous adverse reaction [Unknown]
  - Hypotension [Unknown]
  - Acute respiratory failure [Unknown]
  - Sepsis [Unknown]
  - Thrombosis [Unknown]
  - Pneumonia [Unknown]
  - Malignant neoplasm progression [Unknown]
  - Culture urine positive [Unknown]

NARRATIVE: CASE EVENT DATE: 20220106
